FAERS Safety Report 8616406-0 (Version None)
Quarter: 2012Q3

REPORT INFORMATION
  Report Type: 
  Country: None (occurrence: None)
  Receive Date: 20120823
  Receipt Date: 20120817
  Transmission Date: 20120928
  Serious: Yes (Hospitalization)
  Sender: FDA-Public Use
  Company Number: US-JNJFOC-20120809434

PATIENT
  Sex: Male

DRUGS (4)
  1. DIABETES MEDICATION [Concomitant]
     Indication: DIABETES MELLITUS
  2. ALL OTHER THERAPEUTICS [Concomitant]
  3. ASPIRIN [Concomitant]
     Route: 048
  4. STELARA [Suspect]
     Indication: PSORIASIS
     Route: 058
     Dates: start: 20120101, end: 20120701

REACTIONS (4)
  - SOMNOLENCE [None]
  - DEPRESSED MOOD [None]
  - PRURITUS GENERALISED [None]
  - PSORIASIS [None]
